FAERS Safety Report 7166621-0 (Version None)
Quarter: 2010Q4

REPORT INFORMATION
  Report Type: 
  Country: None (occurrence: None)
  Receive Date: 20101203
  Receipt Date: 20101123
  Transmission Date: 20110411
  Serious: Yes (Hospitalization, Other)
  Sender: FDA-Public Use
  Company Number: 2010100041

PATIENT
  Age: 53 Year
  Sex: Female
  Weight: 61.2356 kg

DRUGS (18)
  1. ONSOLIS [Suspect]
     Indication: CANCER PAIN
     Dosage: TITRATE UP TO 4-200 MCG FILMS (UP TO 4 TIMES DAILY), BU; (800 MCG, UP TO 4 TIMES DAILY), BU
     Route: 002
     Dates: start: 20100616, end: 20100901
  2. ONSOLIS [Suspect]
     Indication: CANCER PAIN
     Dosage: TITRATE UP TO 4-200 MCG FILMS (UP TO 4 TIMES DAILY), BU; (800 MCG, UP TO 4 TIMES DAILY), BU
     Route: 002
     Dates: start: 20100902
  3. ONSOLIS [Suspect]
  4. CHEMOTHERAPY [Suspect]
     Indication: BLADDER CANCER
     Dosage: (1 IN 3 WK), IV
     Route: 042
     Dates: start: 20100101
  5. METHADONE HCL [Concomitant]
  6. OXYCODONE HCL [Concomitant]
  7. LORCET-HD [Concomitant]
  8. VALIUM [Concomitant]
  9. PROZAC [Concomitant]
  10. OMEPRAZOLE [Concomitant]
  11. VESICARE [Concomitant]
  12. LACTULOSE [Concomitant]
  13. AMBIEN CR [Concomitant]
  14. PROTONIX [Concomitant]
  15. LISINOPRIL [Concomitant]
  16. INSULIN (INSULIN) [Concomitant]
  17. COMBIVENT (IPRATROPIUM BROMIDE, ALBUTEROL) [Concomitant]
  18. AUGMENTIN '125' [Concomitant]

REACTIONS (21)
  - ABDOMINAL PAIN [None]
  - AMNESIA [None]
  - ANAEMIA OF CHRONIC DISEASE [None]
  - ASTHENIA [None]
  - BLOOD ELECTROLYTES DECREASED [None]
  - CHEST PAIN [None]
  - CONDITION AGGRAVATED [None]
  - DEHYDRATION [None]
  - HEADACHE [None]
  - HYPOKALAEMIA [None]
  - HYPOVOLAEMIA [None]
  - INCORRECT DOSE ADMINISTERED [None]
  - METASTASES TO LIVER [None]
  - METASTASES TO LUNG [None]
  - NAUSEA [None]
  - PAIN [None]
  - PRURITUS GENERALISED [None]
  - PULMONARY NECROSIS [None]
  - STRESS [None]
  - THYROID MASS [None]
  - VOMITING [None]
